FAERS Safety Report 18481900 (Version 2)
Quarter: 2020Q4

REPORT INFORMATION
  Report Type: Report from Study
  Country: US (occurrence: US)
  Receive Date: 20201109
  Receipt Date: 20201211
  Transmission Date: 20210114
  Serious: Yes (Hospitalization, Other)
  Sender: FDA-Public Use
  Company Number: US-EXELIXIS-XL18420034625

PATIENT
  Age: 90 Year
  Sex: Female
  Weight: 37.55 kg

DRUGS (14)
  1. DEXAMETHASONE. [Concomitant]
     Active Substance: DEXAMETHASONE
  2. MELATONIN [Concomitant]
     Active Substance: MELATONIN
  3. XL184 [Suspect]
     Active Substance: CABOZANTINIB
     Indication: NON-SMALL CELL LUNG CANCER
     Dosage: 40 MG, QD
     Route: 048
     Dates: start: 20200816
  4. APIXABAN [Concomitant]
     Active Substance: APIXABAN
  5. TAMSULOSIN [Concomitant]
     Active Substance: TAMSULOSIN
  6. ACETAMINOPHEN. [Concomitant]
     Active Substance: ACETAMINOPHEN
  7. ELIQUIS [Concomitant]
     Active Substance: APIXABAN
  8. ATENOLOL. [Concomitant]
     Active Substance: ATENOLOL
  9. BISACODYL. [Concomitant]
     Active Substance: BISACODYL
  10. XL184 [Suspect]
     Active Substance: CABOZANTINIB
     Dosage: 20 MG, QD
     Route: 048
     Dates: end: 20201109
  11. PANTOPRAZOLE SODIUM. [Concomitant]
     Active Substance: PANTOPRAZOLE SODIUM
  12. ATEZOLIZUMAB. [Suspect]
     Active Substance: ATEZOLIZUMAB
     Indication: NON-SMALL CELL LUNG CANCER
     Dosage: 1200 MG, Q3WEEKS
     Route: 042
     Dates: start: 20200816, end: 20201031
  13. CYCLOBENZAPRINE. [Concomitant]
     Active Substance: CYCLOBENZAPRINE
  14. OXYCODONE [Concomitant]
     Active Substance: OXYCODONE

REACTIONS (1)
  - Spinal cord compression [Recovering/Resolving]

NARRATIVE: CASE EVENT DATE: 20201030
